FAERS Safety Report 4617157-X (Version None)
Quarter: 2005Q1

REPORT INFORMATION
  Report Type: 
  Country: None (occurrence: None)
  Receive Date: 20050323
  Receipt Date: 20050311
  Transmission Date: 20050727
  Serious: Yes (Other)
  Sender: FDA-Public Use
  Company Number: CA-GLAXOSMITHKLINE-A0549457A

PATIENT
  Sex: Male
  Weight: 90.9 kg

DRUGS (2)
  1. PAXIL CR [Suspect]
     Indication: SLEEP DISORDER
     Dosage: 12.5MG UNKNOWN
     Route: 048
     Dates: start: 20041001, end: 20050123
  2. PAXIL [Concomitant]
     Dosage: 30MG UNKNOWN
     Route: 048
     Dates: start: 20050101

REACTIONS (6)
  - BALANCE DISORDER [None]
  - DIZZINESS [None]
  - ILL-DEFINED DISORDER [None]
  - RESPIRATORY TRACT INFECTION [None]
  - TREMOR [None]
  - VERTIGO [None]
